FAERS Safety Report 6405794-1 (Version None)
Quarter: 2009Q4

REPORT INFORMATION
  Report Type: 
  Country: None (occurrence: None)
  Receive Date: 20091019
  Receipt Date: 20091015
  Transmission Date: 20100525
  Serious: Yes (Hospitalization)
  Sender: FDA-Public Use
  Company Number: US-BAYER-200935794GPV

PATIENT
  Age: 64 Year
  Sex: Male
  Weight: 47 kg

DRUGS (6)
  1. SORAFENIB [Suspect]
     Indication: HEPATIC NEOPLASM MALIGNANT
     Dosage: TOTAL DAILY DOSE: 800 MG
     Route: 048
     Dates: start: 20090730, end: 20091001
  2. SPIRONOLACTONE [Concomitant]
     Indication: OEDEMA PERIPHERAL
     Dates: start: 20090930
  3. MORPHINE [Concomitant]
     Indication: ABDOMINAL PAIN
     Dosage: 1-3 TIMES PER DAY
     Dates: start: 20090813
  4. FENTANYL CITRATE [Concomitant]
     Indication: ABDOMINAL PAIN
     Dosage: AS USED: 12 G
     Route: 062
     Dates: start: 20090727
  5. NULYTELY [Concomitant]
     Indication: CONSTIPATION
     Dates: start: 20090914, end: 20091001
  6. FORTIMEL [Concomitant]
     Indication: MEDICAL DIET
     Dates: start: 20090813

REACTIONS (2)
  - ASTHENIA [None]
  - GENERAL PHYSICAL HEALTH DETERIORATION [None]
